FAERS Safety Report 8577496-7 (Version None)
Quarter: 2012Q3

REPORT INFORMATION
  Report Type: 
  Country: None (occurrence: None)
  Receive Date: 20120807
  Receipt Date: 20120725
  Transmission Date: 20120928
  Serious: Yes (Hospitalization)
  Sender: FDA-Public Use
  Company Number: CH-FRI-1000037460

PATIENT
  Age: 82 Year
  Sex: Male

DRUGS (15)
  1. POTASSIUM CHLORIDE [Concomitant]
     Dosage: 20 MMOL
     Route: 048
  2. VOLTAREN [Suspect]
     Dosage: 150 MG
     Route: 048
     Dates: end: 20120501
  3. SINTROM [Suspect]
     Route: 048
     Dates: end: 20120429
  4. SPIRIVA [Concomitant]
     Dosage: 18 MCG
  5. AVODART [Concomitant]
     Dosage: 0.5 MG
     Route: 048
  6. EZETIMIBE [Suspect]
     Dosage: 10/20 MG DAY
     Route: 048
     Dates: end: 20120401
  7. IRBESARTAN [Concomitant]
     Dosage: 150 MG
     Route: 048
  8. CARDIPLANT [Concomitant]
     Dosage: 160 MG
     Route: 048
  9. PRIORIN N [Concomitant]
     Route: 048
  10. ALLOPURINOL [Suspect]
     Indication: GOUT
     Dosage: 300 MG
     Route: 048
     Dates: end: 20120501
  11. INDAPAMIDE [Suspect]
     Indication: ESSENTIAL HYPERTENSION
     Dosage: 1.5 MG
     Route: 048
  12. NEBIVOLOL [Suspect]
     Indication: ESSENTIAL HYPERTENSION
     Dosage: 1.25 MG
     Route: 048
     Dates: end: 20120429
  13. ASPIRIN [Suspect]
     Dosage: 100 MG
     Route: 048
     Dates: end: 20120101
  14. TRANSIPEG [Concomitant]
     Route: 048
  15. ACETYLCYSTEINE [Concomitant]
     Dosage: 600 MG
     Route: 048

REACTIONS (7)
  - RENAL FAILURE ACUTE [None]
  - MYOCARDIAL INFARCTION [None]
  - HAEMORRHAGIC ANAEMIA [None]
  - HAEMATOCHEZIA [None]
  - GASTROINTESTINAL HAEMORRHAGE [None]
  - GASTRIC ULCER [None]
  - DIZZINESS [None]
